FAERS Safety Report 9277472 (Version 3)
Quarter: 2014Q1

REPORT INFORMATION
  Report Type: Spontaneous
  Country: FR (occurrence: FR)
  Receive Date: 20130508
  Receipt Date: 20140314
  Transmission Date: 20141002
  Serious: Yes (Hospitalization)
  Sender: FDA-Public Use
  Company Number: FR-ROCHE-1222017

PATIENT
  Age: 62 Year
  Sex: Male

DRUGS (13)
  1. XELODA [Suspect]
     Indication: PRODUCT USED FOR UNKNOWN INDICATION
     Route: 048
     Dates: start: 201304, end: 201304
  2. AVASTIN [Suspect]
     Indication: PRODUCT USED FOR UNKNOWN INDICATION
     Route: 042
     Dates: start: 20130403, end: 20130403
  3. OXALIPLATIN [Suspect]
     Indication: PRODUCT USED FOR UNKNOWN INDICATION
     Route: 042
     Dates: start: 20130403, end: 20130403
  4. FOLINIC ACID [Concomitant]
  5. 5-FU [Concomitant]
  6. ELOXATIN [Concomitant]
  7. CAMPTOSAR [Concomitant]
  8. ERBITUX [Concomitant]
  9. VECTIBIX [Concomitant]
  10. PROZAC [Concomitant]
  11. MOPRAL (FRANCE) [Concomitant]
  12. INNOHEP [Concomitant]
  13. ATARAX (FRANCE) [Concomitant]

REACTIONS (1)
  - Mucosal inflammation [Recovering/Resolving]
